FAERS Safety Report 9807397 (Version 1)
Quarter: 2014Q1

REPORT INFORMATION
  Report Type: Report from Study
  Country: US (occurrence: US)
  Receive Date: 20140110
  Receipt Date: 20140110
  Transmission Date: 20141002
  Serious: Yes (Disabling)
  Sender: FDA-Public Use
  Company Number: US-ROCHE-1328002

PATIENT
  Sex: Female
  Weight: 134.84 kg

DRUGS (17)
  1. LUCENTIS [Suspect]
     Indication: AGE-RELATED MACULAR DEGENERATION
     Route: 050
  2. LUCENTIS [Suspect]
     Indication: AGE-RELATED MACULAR DEGENERATION
  3. LUCENTIS [Suspect]
     Indication: RETINAL HAEMORRHAGE
  4. AMLODIPINE [Concomitant]
     Route: 048
  5. CALCIUM ACETATE [Concomitant]
  6. COUMADIN [Concomitant]
  7. DIOVAN [Concomitant]
  8. FUROSEMIDE [Concomitant]
  9. HYDROCHLOROTHIAZIDE [Concomitant]
  10. LOVASTATIN [Concomitant]
  11. MULTAQ [Concomitant]
     Route: 048
  12. POTASSIUM ACETATE [Concomitant]
  13. SYNTHROID [Concomitant]
  14. PHENYLEPHRINE [Concomitant]
     Route: 065
  15. TROPICAMIDE [Concomitant]
     Route: 065
  16. PROPARACAINE [Concomitant]
  17. AREDS SUPPLEMENT NOS [Concomitant]
     Dosage: 3 TABLETS/DAY
     Route: 065

REACTIONS (10)
  - Blindness [Unknown]
  - Vision blurred [Unknown]
  - Palpitations [Unknown]
  - Arthralgia [Unknown]
  - Back pain [Unknown]
  - Subretinal fibrosis [Unknown]
  - Macular degeneration [Unknown]
  - Drug ineffective [Unknown]
  - Joint swelling [Unknown]
  - Joint stiffness [Unknown]
